FAERS Safety Report 17128808 (Version 1)
Quarter: 2019Q4

REPORT INFORMATION
  Report Type: Spontaneous
  Country: US (occurrence: US)
  Receive Date: 20191206
  Receipt Date: 20191206
  Transmission Date: 20200122
  Serious: Yes (Disabling)
  Sender: FDA-Public Use
  Company Number: None

PATIENT
  Age: 64 Year
  Sex: Male
  Weight: 94.5 kg

DRUGS (12)
  1. NUPLAZID [Suspect]
     Active Substance: PIMAVANSERIN TARTRATE
     Indication: HALLUCINATION
     Dosage: ?          QUANTITY:1 TABLET(S);?
     Route: 048
     Dates: start: 20190130, end: 20190307
  2. CITALOPRAM 20MG. [Concomitant]
  3. DIVALPROEX SOD ER 250MG TAB, 250 MG MYLAN [Concomitant]
     Active Substance: DIVALPROEX SODIUM
  4. CARBAMAZEPINE 100 [Concomitant]
  5. NUPLAZID [Suspect]
     Active Substance: PIMAVANSERIN TARTRATE
     Indication: DEMENTIA
     Dosage: ?          QUANTITY:1 TABLET(S);?
     Route: 048
     Dates: start: 20190130, end: 20190307
  6. BUSPIRONE [Concomitant]
     Active Substance: BUSPIRONE HYDROCHLORIDE
  7. MULTI-VITAMIN [Concomitant]
     Active Substance: .ALPHA.-TOCOPHEROL ACETATE, DL-\ASCORBIC ACID\CYANOCOBALAMIN\FLUORIDE ION\FOLIC ACID\NIACIN\PYRIDOXINE\RIBOFLAVIN\THIAMINE\VITAMIN A\VITAMIN D
  8. FINASTERIDE 5MG [Concomitant]
     Active Substance: FINASTERIDE
  9. MIRAPEX 0.5MG [Concomitant]
  10. TRAZEDONE 100MG [Concomitant]
  11. CLONAZAPAM 2MG [Concomitant]
  12. SENNA [Concomitant]
     Active Substance: SENNA LEAF\SENNOSIDES\SENNOSIDES A AND B

REACTIONS (6)
  - Hallucination [None]
  - Anal incontinence [None]
  - Urinary tract infection [None]
  - General physical health deterioration [None]
  - Feeling abnormal [None]
  - Urinary incontinence [None]

NARRATIVE: CASE EVENT DATE: 20190130
